FAERS Safety Report 5255123-4 (Version None)
Quarter: 2007Q1

REPORT INFORMATION
  Report Type: 
  Country: None (occurrence: None)
  Receive Date: 20070228
  Receipt Date: 20070214
  Transmission Date: 20070707
  Serious: Yes (Life-Threatening, Hospitalization)
  Sender: FDA-Public Use
  Company Number: POMP-10934

PATIENT
  Age: 8 Year
  Sex: Female

DRUGS (4)
  1. MYOZYME [Suspect]
     Indication: GLYCOGEN STORAGE DISEASE TYPE II
     Dosage: 40 MG/KG QWK IV
     Route: 042
  2. MYOZYME [Suspect]
  3. ZYRTEC [Concomitant]
  4. HYDROCORTISONE [Concomitant]

REACTIONS (14)
  - ABDOMINAL PAIN UPPER [None]
  - AUTONOMIC NERVOUS SYSTEM IMBALANCE [None]
  - BLOOD IMMUNOGLOBULIN E INCREASED [None]
  - BRADYCARDIA [None]
  - BRONCHOSPASM [None]
  - CARDIAC ARREST [None]
  - EOSINOPHILIA [None]
  - ERYTHEMA [None]
  - GASTROENTERITIS [None]
  - INFUSION RELATED REACTION [None]
  - OEDEMA [None]
  - OEDEMA PERIPHERAL [None]
  - RASH [None]
  - VASOCONSTRICTION [None]
